FAERS Safety Report 9687207 (Version 1)
Quarter: 2013Q4

REPORT INFORMATION
  Report Type: Spontaneous
  Country: GB (occurrence: GB)
  Receive Date: 20131113
  Receipt Date: 20131113
  Transmission Date: 20140711
  Serious: Yes (Disabling, Other)
  Sender: FDA-Public Use
  Company Number: GB-MYLANLABS-2013S1024742

PATIENT
  Age: 76 Year
  Sex: Male
  Weight: 68.4 kg

DRUGS (7)
  1. TAMSULOSIN [Suspect]
     Indication: DYSURIA
     Route: 048
     Dates: start: 20130123, end: 20130901
  2. BENDROFLUMETHIAZIDE [Concomitant]
     Indication: HYPERTENSION
     Route: 048
     Dates: start: 2002
  3. CLENIL MODULITE [Concomitant]
     Indication: ASTHMA
  4. FENOFIBRATE [Concomitant]
     Indication: PROPHYLAXIS
     Dates: start: 201301
  5. IMIDAPRIL [Concomitant]
     Indication: HYPERTENSION
     Dates: start: 2002
  6. OMEPRAZOLE [Concomitant]
     Indication: DYSPEPSIA
     Dates: start: 201301
  7. SALBUTAMOL [Concomitant]
     Indication: ASTHMA

REACTIONS (4)
  - Oedema peripheral [Recovered/Resolved]
  - Asthenia [Unknown]
  - Dizziness [Recovered/Resolved]
  - Dyspnoea [Recovered/Resolved]
